FAERS Safety Report 6245279-9 (Version None)
Quarter: 2009Q2

REPORT INFORMATION
  Report Type: 
  Country: None (occurrence: None)
  Receive Date: 20090623
  Receipt Date: 20090623
  Transmission Date: 20091009
  Serious: No
  Sender: FDA-Public Use
  Company Number: None

PATIENT
  Age: 50 Year
  Sex: Female
  Weight: 45.3597 kg

DRUGS (1)
  1. ZYCAM NASAL SWABS [Suspect]
     Indication: NASOPHARYNGITIS
     Dosage: USED AS DIRECTED
     Dates: start: 20061021, end: 20061028

REACTIONS (3)
  - DRUG INEFFECTIVE [None]
  - DYSGEUSIA [None]
  - PAROSMIA [None]
